FAERS Safety Report 8071682-0 (Version None)
Quarter: 2012Q1

REPORT INFORMATION
  Report Type: 
  Country: None (occurrence: None)
  Receive Date: 20120125
  Receipt Date: 20120118
  Transmission Date: 20120608
  Serious: Yes (Other)
  Sender: FDA-Public Use
  Company Number: US-ABBOTT-12P-163-0895081-00

PATIENT
  Age: 19 Year
  Sex: Male

DRUGS (1)
  1. HUMIRA [Suspect]
     Indication: CROHN'S DISEASE
     Dates: start: 20100101

REACTIONS (4)
  - GASTRIC DILATATION [None]
  - INJECTION SITE SWELLING [None]
  - INJECTION SITE PRURITUS [None]
  - INTESTINAL STENOSIS [None]
